FAERS Safety Report 5803078-3 (Version None)
Quarter: 2008Q3

REPORT INFORMATION
  Report Type: 
  Country: None (occurrence: None)
  Receive Date: 20080703
  Receipt Date: 20080623
  Transmission Date: 20090109
  Serious: Yes (Disabling)
  Sender: FDA-Public Use
  Company Number: 2008-179016-NL

PATIENT
  Age: 66 Year
  Sex: Male

DRUGS (10)
  1. MIRTAZAPINE [Suspect]
     Indication: DEPRESSION
     Dosage: 15 MG/30 MG/DF
     Dates: start: 20071001, end: 20070101
  2. MIRTAZAPINE [Suspect]
     Indication: DEPRESSION
     Dosage: 15 MG/30 MG/DF
     Dates: start: 20070101, end: 20080501
  3. MIRTAZAPINE [Suspect]
     Indication: DEPRESSION
     Dosage: 15 MG/30 MG/DF
     Dates: start: 20080606, end: 20080615
  4. ERYTHROMYCIN [Suspect]
     Indication: PNEUMONIA
     Dosage: DF
     Dates: start: 20080519, end: 20080501
  5. ACETAMINOPHEN [Concomitant]
  6. ACETAMINOPHEN [Concomitant]
  7. LORAZEPAM [Concomitant]
  8. LEVOTHYROXINE SODIUM [Concomitant]
  9. SIMVASTATIN [Concomitant]
  10. CLOPIDOGREL BISULFATE [Concomitant]

REACTIONS (8)
  - AGITATION [None]
  - DRUG INTERACTION [None]
  - HEADACHE [None]
  - HYPERVENTILATION [None]
  - INSOMNIA [None]
  - IRRITABILITY [None]
  - PSYCHOMOTOR HYPERACTIVITY [None]
  - RESTLESSNESS [None]
